FAERS Safety Report 7699031-8 (Version None)
Quarter: 2011Q3

REPORT INFORMATION
  Report Type: 
  Country: None (occurrence: None)
  Receive Date: 20110819
  Receipt Date: 20110809
  Transmission Date: 20111222
  Serious: Yes (Hospitalization, Other)
  Sender: FDA-Public Use
  Company Number: US-ABBOTT-11P-163-0734901-00

PATIENT
  Sex: Female
  Weight: 63.56 kg

DRUGS (28)
  1. HYDROCHLOROTHIAZIDE [Suspect]
     Indication: PRODUCT USED FOR UNKNOWN INDICATION
  2. NOPALEA (PLANT ALKALOIDS AND OTHER NATURAL PRODUCTS) [Suspect]
     Indication: ARTHRALGIA
  3. FUROSEMIDE [Suspect]
     Indication: PRODUCT USED FOR UNKNOWN INDICATION
     Route: 065
  4. AMLODIPINE BESYLATE [Suspect]
     Indication: HYPERTENSION
     Dosage: FILM-COATED; DAILY
     Route: 048
     Dates: start: 19950101
  5. LOSARTAN POTASSIUM [Suspect]
     Indication: PRODUCT USED FOR UNKNOWN INDICATION
     Route: 065
  6. NEBIVOLOL HCL [Suspect]
     Indication: PRODUCT USED FOR UNKNOWN INDICATION
     Route: 065
  7. REGLAN [Suspect]
     Indication: PRODUCT USED FOR UNKNOWN INDICATION
  8. VALSARTAN [Suspect]
     Indication: PRODUCT USED FOR UNKNOWN INDICATION
     Route: 065
  9. DEPAKOTE [Suspect]
     Indication: CONVULSION
     Route: 065
  10. ATACAND [Suspect]
     Indication: HYPERTENSION
     Route: 048
  11. PHENYTOIN [Suspect]
     Indication: PRODUCT USED FOR UNKNOWN INDICATION
     Route: 065
  12. ATACAND [Suspect]
     Route: 048
  13. CIPROFLOXACIN [Suspect]
     Indication: PRODUCT USED FOR UNKNOWN INDICATION
     Route: 065
  14. LIDOCAINE [Suspect]
     Indication: INGROWING NAIL
     Route: 065
     Dates: start: 20100513, end: 20100513
  15. LEVAQUIN [Suspect]
     Indication: PRODUCT USED FOR UNKNOWN INDICATION
     Route: 065
  16. AMLODIPINE BESYLATE [Suspect]
     Dosage: FILM-COATED; DAILY
     Route: 048
     Dates: start: 19970101
  17. BACTRIM [Suspect]
     Indication: PRODUCT USED FOR UNKNOWN INDICATION
     Route: 065
  18. LISINOPRIL [Suspect]
     Indication: PRODUCT USED FOR UNKNOWN INDICATION
     Route: 065
  19. XANAX [Suspect]
     Indication: PRODUCT USED FOR UNKNOWN INDICATION
     Route: 065
  20. MACROBID [Suspect]
     Indication: PRODUCT USED FOR UNKNOWN INDICATION
     Route: 065
  21. LEVOTHYROXINE SODIUM [Concomitant]
     Indication: PRODUCT USED FOR UNKNOWN INDICATION
  22. TOPROL-XL [Suspect]
     Indication: PRODUCT USED FOR UNKNOWN INDICATION
     Route: 048
  23. NOPALEA (PLANT ALKALOIDS AND OTHER NATURAL PRODUCTS) [Suspect]
     Indication: BLOOD TRIGLYCERIDES INCREASED
  24. AVAPRO [Suspect]
     Indication: HYPERTENSION
     Route: 065
  25. CARDIZEM [Suspect]
     Indication: PRODUCT USED FOR UNKNOWN INDICATION
     Route: 065
  26. BENICAR [Suspect]
     Indication: HYPERTENSION
     Dosage: FILM-COATED
     Route: 065
  27. AMLODIPINE BESYLATE [Suspect]
     Dosage: FILM-COATED TWICE A DAY
     Route: 048
     Dates: start: 20100101
  28. CLONIDINE [Concomitant]
     Indication: PRODUCT USED FOR UNKNOWN INDICATION

REACTIONS (21)
  - ABDOMINAL PAIN [None]
  - ANAEMIA [None]
  - PALPITATIONS [None]
  - BLOOD PRESSURE INCREASED [None]
  - HYPOAESTHESIA [None]
  - GASTRIC DISORDER [None]
  - LOSS OF CONSCIOUSNESS [None]
  - CYSTITIS [None]
  - CHOLECYSTECTOMY [None]
  - ARTERIOGRAM CORONARY ABNORMAL [None]
  - WEIGHT DECREASED [None]
  - BLOOD COUNT ABNORMAL [None]
  - HYPERTENSION [None]
  - BLOOD TRIGLYCERIDES INCREASED [None]
  - INGROWING NAIL [None]
  - BURNING SENSATION [None]
  - DIZZINESS [None]
  - PLATELET COUNT DECREASED [None]
  - FULL BLOOD COUNT DECREASED [None]
  - TOE OPERATION [None]
  - HEADACHE [None]
